FAERS Safety Report 4653392-2 (Version None)
Quarter: 2005Q3

REPORT INFORMATION
  Report Type: 
  Country: None (occurrence: None)
  Receive Date: 20050503
  Receipt Date: 20050425
  Transmission Date: 20060218
  Serious: Yes (Hospitalization, Other)
  Sender: FDA-Public Use
  Company Number: 200410419BNE

PATIENT
  Age: 52 Year
  Sex: Male
  Weight: 78.5 kg

DRUGS (12)
  1. SORAFENIB [Suspect]
     Indication: METASTATIC MALIGNANT MELANOMA
     Dosage: 200 MG, BID, ORAL
     Route: 048
     Dates: start: 20040515
  2. DACARBAZINE [Suspect]
     Indication: METASTATIC MALIGNANT MELANOMA
     Dates: start: 20040604
  3. SODIUM CHLORIDE [Concomitant]
  4. AUGMENTIN [Concomitant]
  5. PEPPERMINT WATER [Concomitant]
  6. NYSTATIN [Concomitant]
  7. CHLORHEXIDINE [Concomitant]
  8. MILPAR [Concomitant]
  9. PARACETAMOL [Concomitant]
  10. CEFUROXIME [Concomitant]
  11. TRAMADOL [Concomitant]
  12. OMEPRAZOLE [Concomitant]

REACTIONS (9)
  - BACTERIAL INFECTION [None]
  - COUGH [None]
  - DEHYDRATION [None]
  - HAEMOGLOBIN DECREASED [None]
  - INFLUENZA LIKE ILLNESS [None]
  - PANCREATIC CARCINOMA METASTATIC [None]
  - PANCREATIC HAEMORRHAGE [None]
  - PANCREATITIS [None]
  - STENT OCCLUSION [None]
